FAERS Safety Report 6267386-7 (Version None)
Quarter: 2009Q3

REPORT INFORMATION
  Report Type: 
  Country: None (occurrence: None)
  Receive Date: 20090714
  Receipt Date: 20090702
  Transmission Date: 20100115
  Serious: Yes (Other)
  Sender: FDA-Public Use
  Company Number: GB-ELI_LILLY_AND_COMPANY-GB200903007222

PATIENT
  Sex: Female

DRUGS (5)
  1. BYETTA [Suspect]
     Dosage: 5 UG, DAILY (1/D)
     Route: 065
     Dates: start: 20080218, end: 20080309
  2. BYETTA [Suspect]
     Dosage: 10 UG, DAILY (1/D)
     Route: 065
     Dates: start: 20080310
  3. BYETTA [Suspect]
     Dosage: 5 UG, DAILY (1/D)
     Route: 065
     Dates: start: 20090101, end: 20090101
  4. BYETTA [Suspect]
     Dosage: 5 UG, DAILY (1/D)
     Route: 065
     Dates: start: 20090101, end: 20090101
  5. METFORMIN HCL [Concomitant]
     Dosage: 850 MG, DAILY (1/D)
     Route: 065

REACTIONS (2)
  - ABDOMINAL PAIN [None]
  - CHOLELITHIASIS [None]
